FAERS Safety Report 14425594 (Version 1)
Quarter: 2018Q1

REPORT INFORMATION
  Report Type: Spontaneous
  Country: US (occurrence: US)
  Receive Date: 20180122
  Receipt Date: 20180122
  Transmission Date: 20180509
  Serious: Yes (Hospitalization)
  Sender: FDA-Public Use
  Company Number: None

PATIENT
  Age: 29 Year
  Sex: Male

DRUGS (3)
  1. ZOLOFT [Concomitant]
     Active Substance: SERTRALINE HYDROCHLORIDE
  2. ABILIFY [Suspect]
     Active Substance: ARIPIPRAZOLE
     Indication: PSYCHOTIC DISORDER
     Route: 048
     Dates: start: 20171217, end: 20171230
  3. REMERON [Concomitant]
     Active Substance: MIRTAZAPINE

REACTIONS (4)
  - Nausea [None]
  - Hyperglycaemia [None]
  - Vomiting [None]
  - Dry mouth [None]

NARRATIVE: CASE EVENT DATE: 20171230
